FAERS Safety Report 16741977 (Version 1)
Quarter: 2019Q3

REPORT INFORMATION
  Report Type: Spontaneous
  Country: SG (occurrence: SG)
  Receive Date: 20190826
  Receipt Date: 20190826
  Transmission Date: 20191005
  Serious: Yes (Other)
  Sender: FDA-Public Use
  Company Number: SG-009507513-1908SGP009235

PATIENT
  Sex: Female

DRUGS (1)
  1. INVANZ [Suspect]
     Active Substance: ERTAPENEM SODIUM
     Indication: KIDNEY INFECTION
     Dosage: FOR DURATION OF 14 DAYS

REACTIONS (3)
  - Head injury [Unknown]
  - Traumatic intracranial haemorrhage [Unknown]
  - Seizure [Unknown]
